FAERS Safety Report 7073053-2 (Version None)
Quarter: 2010Q4

REPORT INFORMATION
  Report Type: 
  Country: None (occurrence: None)
  Receive Date: 20101029
  Receipt Date: 20100601
  Transmission Date: 20110411
  Serious: No
  Sender: FDA-Public Use
  Company Number: A0855480A

PATIENT
  Age: 69 Year
  Sex: Female

DRUGS (13)
  1. ADVAIR DISKUS 100/50 [Suspect]
     Indication: ASTHMA
     Dosage: 1PUFF TWICE PER DAY
     Route: 055
  2. ALBUTEROL [Concomitant]
  3. IBUPROFEN [Concomitant]
  4. FEXOFENADINE HCL [Concomitant]
  5. LEVOTHYROXINE [Concomitant]
  6. OXYBUTYNIN [Concomitant]
  7. BENZONATATE [Concomitant]
  8. ESTRADIOL [Concomitant]
  9. LISINOPRIL [Concomitant]
  10. PREVACID [Concomitant]
  11. ZITHROMAX [Concomitant]
  12. DICYCLOMINE [Concomitant]
  13. FENOFIBRATE [Concomitant]

REACTIONS (2)
  - PRODUCT QUALITY ISSUE [None]
  - PRODUCTIVE COUGH [None]
